FAERS Safety Report 8079528-1 (Version None)
Quarter: 2012Q1

REPORT INFORMATION
  Report Type: 
  Country: None (occurrence: None)
  Receive Date: 20120128
  Receipt Date: 20110830
  Transmission Date: 20120608
  Serious: No
  Sender: FDA-Public Use
  Company Number: US-ABBOTT-11P-163-0850306-00

PATIENT
  Sex: Female

DRUGS (13)
  1. ZOLOFT [Concomitant]
     Indication: DEPRESSION
  2. LEVOTHYROXINE SODIUM [Concomitant]
     Indication: THYROID DISORDER
  3. MULTI-VITAMIN [Concomitant]
     Indication: SUPPLEMENTATION THERAPY
  4. PRAVASTATIN [Concomitant]
     Indication: BLOOD CHOLESTEROL INCREASED
  5. METOPROLOL TARTRATE [Concomitant]
     Indication: HYPERTENSION
  6. AMLODIPINE [Concomitant]
     Indication: HYPERTENSION
  7. LOVAZA [Concomitant]
     Indication: SUPPLEMENTATION THERAPY
  8. LAMICTAL [Concomitant]
     Indication: BIPOLAR I DISORDER
  9. ETODOLAC [Concomitant]
     Indication: PRODUCT USED FOR UNKNOWN INDICATION
  10. ALPRAZOLAM [Concomitant]
     Indication: PRODUCT USED FOR UNKNOWN INDICATION
  11. ASPIRIN [Concomitant]
     Indication: PRODUCT USED FOR UNKNOWN INDICATION
  12. WELLBUTRIN SR [Concomitant]
     Indication: DEPRESSION
  13. HUMIRA [Suspect]
     Indication: RHEUMATOID ARTHRITIS
     Route: 058
     Dates: start: 20030101

REACTIONS (4)
  - RASH ERYTHEMATOUS [None]
  - SKIN DISCOLOURATION [None]
  - DERMATITIS BULLOUS [None]
  - RASH MACULO-PAPULAR [None]
